FAERS Safety Report 5618200-1 (Version None)
Quarter: 2008Q1

REPORT INFORMATION
  Report Type: 
  Country: None (occurrence: None)
  Receive Date: 20080207
  Receipt Date: 20071207
  Transmission Date: 20080703
  Serious: No
  Sender: FDA-Public Use
  Company Number: A0697962A

PATIENT
  Age: 57 Year
  Sex: Male

DRUGS (4)
  1. PAXIL [Suspect]
     Indication: DEPRESSION
     Route: 048
     Dates: start: 20030101
  2. WELLBUTRIN XL [Suspect]
     Indication: DEPRESSION
     Dosage: 300MG PER DAY
     Route: 048
     Dates: start: 20070701
  3. UNKNOWN MEDICATION [Concomitant]
     Indication: GASTROINTESTINAL DISORDER
  4. IMODIUM [Concomitant]

REACTIONS (6)
  - ANXIETY [None]
  - DIARRHOEA [None]
  - NERVOUSNESS [None]
  - POOR QUALITY SLEEP [None]
  - RESTLESSNESS [None]
  - WITHDRAWAL SYNDROME [None]
